FAERS Safety Report 8176179-5 (Version None)
Quarter: 2012Q1

REPORT INFORMATION
  Report Type: 
  Country: None (occurrence: None)
  Receive Date: 20120301
  Receipt Date: 20120224
  Transmission Date: 20120608
  Serious: Yes (Other)
  Sender: FDA-Public Use
  Company Number: PT-JNJFOC-20120212288

PATIENT
  Age: 27 Year
  Sex: Female

DRUGS (2)
  1. REMICADE [Suspect]
     Indication: CROHN'S DISEASE
     Route: 042
     Dates: start: 20100101
  2. CORTICOSTEROIDS NOS [Concomitant]
     Indication: PREMEDICATION
     Route: 065

REACTIONS (6)
  - INFUSION RELATED REACTION [None]
  - HYPOTENSION [None]
  - THROAT TIGHTNESS [None]
  - FLUSHING [None]
  - DYSPNOEA [None]
  - MALAISE [None]
